FAERS Safety Report 16880124 (Version 1)
Quarter: 2019Q4

REPORT INFORMATION
  Report Type: Spontaneous
  Country: BR (occurrence: BR)
  Receive Date: 20191003
  Receipt Date: 20191003
  Transmission Date: 20200122
  Serious: Yes (Other)
  Sender: FDA-Public Use
  Company Number: BR-009507513-1909BRA014965

PATIENT
  Sex: Female

DRUGS (3)
  1. NUVARING [Suspect]
     Active Substance: ETHINYL ESTRADIOL\ETONOGESTREL
     Dosage: 1 DOSAGE FORM, UNK
     Route: 067
     Dates: start: 2015
  2. NUVARING [Suspect]
     Active Substance: ETHINYL ESTRADIOL\ETONOGESTREL
     Indication: CONTRACEPTION
     Dosage: 1 VAGINAL RING FOR 21 DAYS FOLLOWED BY 7 DAYS OF FREE CONTRACEPTIVE PAUSE
     Route: 067
     Dates: start: 2010, end: 2011
  3. MESALAMINE. [Concomitant]
     Active Substance: MESALAMINE
     Indication: CROHN^S DISEASE
     Dosage: 4 TABLETS A DAY
     Dates: start: 2009

REACTIONS (3)
  - Pregnancy with contraceptive device [Recovered/Resolved]
  - Maternal exposure during breast feeding [Unknown]
  - Unintended pregnancy [Recovered/Resolved]
